FAERS Safety Report 10793013 (Version 2)
Quarter: 2015Q1

REPORT INFORMATION
  Report Type: Spontaneous
  Country: US (occurrence: US)
  Receive Date: 20150213
  Receipt Date: 20150213
  Transmission Date: 20150721
  Serious: Yes (Other)
  Sender: FDA-Public Use
  Company Number: US-TEVA-540776USA

PATIENT
  Sex: Female

DRUGS (1)
  1. PARAGARD T 380A [Suspect]
     Active Substance: COPPER
     Indication: CONTRACEPTION
     Route: 015
     Dates: start: 2012

REACTIONS (5)
  - Dermatitis contact [Not Recovered/Not Resolved]
  - Eczema nummular [Not Recovered/Not Resolved]
  - Vaginal laceration [Not Recovered/Not Resolved]
  - Eczema [Not Recovered/Not Resolved]
  - Vulval disorder [Not Recovered/Not Resolved]

NARRATIVE: CASE EVENT DATE: 2012
